FAERS Safety Report 17857054 (Version 2)
Quarter: 2020Q2

REPORT INFORMATION
  Report Type: Spontaneous
  Country: CN (occurrence: CN)
  Receive Date: 20200603
  Receipt Date: 20200630
  Transmission Date: 20200714
  Serious: Yes (Death, Other)
  Sender: FDA-Public Use
  Company Number: CN-BAYER-2020-102409

PATIENT
  Age: 62 Year
  Sex: Female

DRUGS (2)
  1. STIVARGA [Suspect]
     Active Substance: REGORAFENIB
     Dosage: 2 DF, QD
     Route: 048
     Dates: start: 202002, end: 2020
  2. STIVARGA [Suspect]
     Active Substance: REGORAFENIB
     Dosage: 4 DF, QD
     Route: 048
     Dates: start: 2020, end: 20200531

REACTIONS (7)
  - Off label use [None]
  - Aspartate aminotransferase increased [None]
  - Alanine aminotransferase increased [None]
  - Jaundice [Not Recovered/Not Resolved]
  - Malignant neoplasm of unknown primary site [None]
  - Blood bilirubin increased [None]
  - Death [Fatal]

NARRATIVE: CASE EVENT DATE: 2020
